FAERS Safety Report 4503307-2 (Version None)
Quarter: 2004Q4

REPORT INFORMATION
  Report Type: 
  Country: None (occurrence: None)
  Receive Date: 20041112
  Receipt Date: 20041028
  Transmission Date: 20050328
  Serious: Yes (Hospitalization)
  Sender: FDA-Public Use
  Company Number: 2004238395US

PATIENT
  Age: 73 Year
  Sex: Female
  Weight: 91 kg

DRUGS (6)
  1. CAMPTOSAR [Suspect]
     Indication: LUNG NEOPLASM MALIGNANT
     Dosage: 50 MG.M2,D1 + D8, CYCLIC, IV
     Route: 042
     Dates: start: 20041006, end: 20041006
  2. CISPLATIN [Suspect]
     Indication: LUNG NEOPLASM MALIGNANT
     Dosage: 60 MG/M2, D1, Q3WKS, CYCLIC, IV
     Route: 042
     Dates: start: 20041006, end: 20041006
  3. RABEPRAZOLE SODIUM [Concomitant]
  4. DIGITALIS (DIGITALIS) [Concomitant]
  5. EFFEXOR [Concomitant]
  6. HYZAAR [Concomitant]

REACTIONS (12)
  - ACUTE CORONARY SYNDROME [None]
  - ASTHENIA [None]
  - BLOOD CREATININE INCREASED [None]
  - BLOOD PRESSURE SYSTOLIC DECREASED [None]
  - BLOOD UREA INCREASED [None]
  - CARDIAC ENZYMES INCREASED [None]
  - DEHYDRATION [None]
  - DIARRHOEA [None]
  - FATIGUE [None]
  - GASTROOESOPHAGEAL REFLUX DISEASE [None]
  - HYPOVOLAEMIC SHOCK [None]
  - TACHYCARDIA [None]
